FAERS Safety Report 7451379-8 (Version None)
Quarter: 2011Q2

REPORT INFORMATION
  Report Type: 
  Country: None (occurrence: None)
  Receive Date: 20110422
  Receipt Date: 20110407
  Transmission Date: 20111010
  Serious: Yes (Hospitalization, Other)
  Sender: FDA-Public Use
  Company Number: 027703

PATIENT
  Sex: Male

DRUGS (5)
  1. CIMZIA [Suspect]
     Indication: CROHN'S DISEASE
     Dosage: 400 MG 1X/MONTH SUBCUTANEOUS; SUBCUTANEOUS
     Route: 058
     Dates: start: 20090401, end: 20100217
  2. CIMZIA [Suspect]
     Indication: CROHN'S DISEASE
     Dosage: 400 MG 1X/MONTH SUBCUTANEOUS; SUBCUTANEOUS
     Route: 058
     Dates: start: 20100801, end: 20110201
  3. AZATHIOPRINE [Concomitant]
  4. PENTASA [Concomitant]
  5. QUESTRAN [Concomitant]

REACTIONS (7)
  - SCAR [None]
  - CONDITION AGGRAVATED [None]
  - DRUG INEFFECTIVE [None]
  - INFLAMMATION [None]
  - LARGE INTESTINAL STRICTURE [None]
  - SMALL INTESTINAL OBSTRUCTION [None]
  - CROHN'S DISEASE [None]
